FAERS Safety Report 5117158-1 (Version None)
Quarter: 2006Q3

REPORT INFORMATION
  Report Type: 
  Country: None (occurrence: None)
  Receive Date: 20060927
  Receipt Date: 20060927
  Transmission Date: 20061208
  Serious: Yes (Other)
  Sender: FDA-Public Use
  Company Number: None

PATIENT
  Age: 84 Year
  Sex: Male
  Weight: 73.4827 kg

DRUGS (1)
  1. FLOMAX [Suspect]
     Dosage: 0.4 MG DAILY BY MOUTH
     Route: 048

REACTIONS (4)
  - CATARACT OPERATION COMPLICATION [None]
  - MIOSIS [None]
  - PROCEDURAL COMPLICATION [None]
  - PUPILLARY DISORDER [None]
